FAERS Safety Report 26114553 (Version 1)
Quarter: 2025Q4

REPORT INFORMATION
  Report Type: Spontaneous
  Country: US (occurrence: US)
  Receive Date: 20251202
  Receipt Date: 20251202
  Transmission Date: 20260117
  Serious: Yes (Life-Threatening)
  Sender: ABBVIE
  Company Number: US-MLMSERVICE-20251119-PI718294-00136-1

PATIENT
  Age: 22 Year

DRUGS (1)
  1. ESCITALOPRAM [Suspect]
     Active Substance: ESCITALOPRAM OXALATE
     Indication: Depression
     Route: 065

REACTIONS (1)
  - Neutropenia [Recovering/Resolving]
